FAERS Safety Report 6108765-8 (Version None)
Quarter: 2009Q1

REPORT INFORMATION
  Report Type: 
  Country: None (occurrence: None)
  Receive Date: 20090310
  Receipt Date: 20090305
  Transmission Date: 20090719
  Serious: No
  Sender: FDA-Public Use
  Company Number: US-JNJFOC-20090301805

PATIENT
  Sex: Female
  Weight: 79.38 kg

DRUGS (2)
  1. DURAGESIC-100 [Suspect]
     Indication: COMPLEX REGIONAL PAIN SYNDROME
     Route: 062
  2. OXYCODONE [Concomitant]
     Indication: PAIN
     Route: 048

REACTIONS (2)
  - APPLICATION SITE VESICLES [None]
  - DRUG ADMINISTERED AT INAPPROPRIATE SITE [None]
